FAERS Safety Report 24623909 (Version 1)
Quarter: 2024Q4

REPORT INFORMATION
  Report Type: Spontaneous
  Country: ZA (occurrence: ZA)
  Receive Date: 20241115
  Receipt Date: 20241115
  Transmission Date: 20250115
  Serious: Yes (Hospitalization, Other)
  Sender: ALEXION PHARMACEUTICALS
  Company Number: ZA-AstraZeneca-CH-00716023A

PATIENT
  Age: 76 Year

DRUGS (22)
  1. DAPAGLIFLOZIN [Suspect]
     Active Substance: DAPAGLIFLOZIN
     Indication: Diabetes mellitus
  2. DAPAGLIFLOZIN [Suspect]
     Active Substance: DAPAGLIFLOZIN
  3. DAPAGLIFLOZIN [Suspect]
     Active Substance: DAPAGLIFLOZIN
  4. DAPAGLIFLOZIN [Suspect]
     Active Substance: DAPAGLIFLOZIN
  5. CARVEDILOL [Concomitant]
     Active Substance: CARVEDILOL
     Indication: Hypertension
  6. CARVEDILOL [Concomitant]
     Active Substance: CARVEDILOL
  7. INDAPAMIDE [Concomitant]
     Active Substance: INDAPAMIDE
     Indication: Hypertension
  8. INDAPAMIDE [Concomitant]
     Active Substance: INDAPAMIDE
  9. GLICLAZIDE [Concomitant]
     Active Substance: GLICLAZIDE
     Indication: Diabetes mellitus
  10. GLICLAZIDE [Concomitant]
     Active Substance: GLICLAZIDE
  11. GEN PAYNE [Concomitant]
  12. GEN PAYNE [Concomitant]
  13. Dicloflam [Concomitant]
  14. Dicloflam [Concomitant]
  15. ACETAMINOPHEN\ORPHENADRINE CITRATE [Concomitant]
     Active Substance: ACETAMINOPHEN\ORPHENADRINE CITRATE
  16. ACETAMINOPHEN\ORPHENADRINE CITRATE [Concomitant]
     Active Substance: ACETAMINOPHEN\ORPHENADRINE CITRATE
  17. FERROUS FORTE [Concomitant]
  18. FERROUS FORTE [Concomitant]
  19. ZOLPIDEM [Concomitant]
     Active Substance: ZOLPIDEM TARTRATE
  20. ZOLPIDEM [Concomitant]
     Active Substance: ZOLPIDEM TARTRATE
  21. NICOTINAMIDE [Concomitant]
     Active Substance: NIACINAMIDE
  22. NICOTINAMIDE [Concomitant]
     Active Substance: NIACINAMIDE

REACTIONS (1)
  - Neoplasm malignant [Unknown]
